FAERS Safety Report 8075940-5 (Version None)
Quarter: 2012Q1

REPORT INFORMATION
  Report Type: 
  Country: None (occurrence: None)
  Receive Date: 20120125
  Receipt Date: 20120125
  Transmission Date: 20120608
  Serious: Yes (Hospitalization)
  Sender: FDA-Public Use
  Company Number: None

PATIENT
  Age: 57 Year
  Sex: Male
  Weight: 107.3 kg

DRUGS (2)
  1. DAPTOMYCIN [Suspect]
     Indication: OSTEOMYELITIS
     Dosage: 750 MG EVERY DAY IV
     Route: 042
     Dates: start: 20110824, end: 20111003
  2. SIMVASTATIN [Suspect]
     Indication: HYPERLIPIDAEMIA
     Dosage: 40 MG HS PO
     Route: 048
     Dates: start: 20110228, end: 20110903

REACTIONS (1)
  - RHABDOMYOLYSIS [None]
